FAERS Safety Report 4795131-0 (Version None)
Quarter: 2005Q4

REPORT INFORMATION
  Report Type: 
  Country: None (occurrence: None)
  Receive Date: 20051012
  Receipt Date: 20040929
  Transmission Date: 20060501
  Serious: Yes (Hospitalization)
  Sender: FDA-Public Use
  Company Number: JP-NOVOPROD-247342

PATIENT
  Age: 38 Year
  Sex: Female
  Weight: 48 kg

DRUGS (5)
  1. NOVORAPID CHU FLEXPEN [Suspect]
     Indication: DIABETES MELLITUS INSULIN-DEPENDENT
     Dosage: 16 IU, QD
     Route: 058
     Dates: start: 20031209
  2. LANTUS [Suspect]
     Indication: DIABETES MELLITUS INSULIN-DEPENDENT
     Dosage: 12 IU, QD
     Route: 058
     Dates: start: 20031220, end: 20050414
  3. LANTUS [Suspect]
     Dosage: 12 IU, QD
     Dates: start: 20050802
  4. NOVOLIN N [Suspect]
     Indication: DIABETES MELLITUS INSULIN-DEPENDENT
     Dosage: UNK, UNK
     Dates: start: 20030810, end: 20031219
  5. NOVOLIN N [Suspect]
     Dates: start: 20050415, end: 20050801

REACTIONS (1)
  - LIVER FUNCTION TEST ABNORMAL [None]
